FAERS Safety Report 4411479-3 (Version None)
Quarter: 2004Q2

REPORT INFORMATION
  Report Type: 
  Country: None (occurrence: None)
  Receive Date: 20040630
  Receipt Date: 20040527
  Transmission Date: 20050107
  Serious: No
  Sender: FDA-Public Use
  Company Number: 04P-163-0262189-00

PATIENT
  Age: 55 Year
  Sex: Female
  Weight: 104.3273 kg

DRUGS (7)
  1. HUMIRA [Suspect]
     Indication: RHEUMATOID ARTHRITIS
     Dosage: 40 MG, 1 IN 2 WK, SUBCUTANEOUS
     Route: 058
     Dates: start: 20040331
  2. ARTHROTEC [Concomitant]
  3. SULFASALAZINE [Concomitant]
  4. DIOVAN [Concomitant]
  5. CONJUGATED ESTROGEN [Concomitant]
  6. FOLIC ACID [Concomitant]
  7. METHOTREXATE SODIUM [Concomitant]

REACTIONS (3)
  - ANAEMIA [None]
  - INJECTION SITE REACTION [None]
  - RED BLOOD CELL SEDIMENTATION RATE INCREASED [None]
